FAERS Safety Report 15464973 (Version 3)
Quarter: 2019Q1

REPORT INFORMATION
  Report Type: Spontaneous
  Country: JP (occurrence: JP)
  Receive Date: 20181004
  Receipt Date: 20190219
  Transmission Date: 20190417
  Serious: Yes (Death, Hospitalization)
  Sender: FDA-Public Use
  Company Number: PHJP2015JP020606

PATIENT
  Age: 58 Year
  Sex: Male
  Weight: 63 kg

DRUGS (10)
  1. URSO [Concomitant]
     Active Substance: URSODIOL
     Indication: HEPATIC FUNCTION ABNORMAL
     Dosage: 100 MG, TID
     Route: 048
     Dates: start: 20141007, end: 20151106
  2. CRESTOR [Concomitant]
     Active Substance: ROSUVASTATIN CALCIUM
     Indication: DYSLIPIDAEMIA
     Dosage: 2.5 MG, QD
     Route: 048
     Dates: start: 20141007, end: 20151106
  3. ZETIA [Concomitant]
     Active Substance: EZETIMIBE
     Indication: DYSLIPIDAEMIA
     Dosage: 10 MG, QD
     Route: 048
     Dates: start: 20141007, end: 20151106
  4. GILENYA [Suspect]
     Active Substance: FINGOLIMOD HYDROCHLORIDE
     Indication: MULTIPLE SCLEROSIS
     Dosage: 0.5 MG, QD
     Route: 048
     Dates: start: 20120419
  5. GILENYA [Suspect]
     Active Substance: FINGOLIMOD HYDROCHLORIDE
     Dosage: 0.5 MG, QOD
     Route: 048
     Dates: start: 201301, end: 20151114
  6. SOL-MELCORT [Suspect]
     Active Substance: METHYLPREDNISOLONE SODIUM SUCCINATE
     Indication: MULTIPLE SCLEROSIS
     Dosage: 1 G, QMO
     Route: 065
     Dates: end: 20151106
  7. CEPHADOL [Concomitant]
     Active Substance: DIPHENIDOL HYDROCHLORIDE
     Indication: DIZZINESS
     Dosage: 25 MG, BID
     Route: 048
     Dates: start: 20141007, end: 20151106
  8. RECALBON//ALFACALCIDOL [Concomitant]
     Indication: OSTEOPOROSIS
     Dosage: 50 MG, QMO
     Route: 048
     Dates: start: 20141007, end: 20151106
  9. LAFUTIDINE [Concomitant]
     Active Substance: LAFUTIDINE
     Indication: GASTRIC ULCER
     Dosage: 10 MG, BID
     Route: 048
     Dates: start: 20141007, end: 20151106
  10. MAGMITT [Concomitant]
     Active Substance: MAGNESIUM OXIDE
     Indication: CONSTIPATION
     Dosage: 500 MG, BID
     Route: 048
     Dates: start: 20141007, end: 20151106

REACTIONS (15)
  - Blood pressure immeasurable [Fatal]
  - Prescribed underdose [Unknown]
  - White blood cell count increased [Unknown]
  - Lymphocyte percentage decreased [Not Recovered/Not Resolved]
  - Encephalitis [Fatal]
  - Somnolence [Fatal]
  - White blood cell count increased [Recovered/Resolved]
  - White blood cell count decreased [Unknown]
  - Lethargy [Fatal]
  - Dyspnoea [Fatal]
  - Neutrophil percentage increased [Not Recovered/Not Resolved]
  - Disorientation [Fatal]
  - Altered state of consciousness [Fatal]
  - Neurocryptococcosis [Fatal]
  - Hepatic function abnormal [Recovered/Resolved]

NARRATIVE: CASE EVENT DATE: 20120419
